FAERS Safety Report 16110738 (Version 1)
Quarter: 2019Q1

REPORT INFORMATION
  Report Type: Spontaneous
  Country: ES (occurrence: ES)
  Receive Date: 20190325
  Receipt Date: 20190325
  Transmission Date: 20190418
  Serious: Yes (Death, Hospitalization)
  Sender: FDA-Public Use
  Company Number: ES-TEVA-2019-ES-1028764

PATIENT
  Age: 79 Year
  Sex: Male

DRUGS (3)
  1. FLUOROURACILO ACCORD 50 MG/ML SOLUCION INYECTABLE O PARA PERFUSION EFG [Concomitant]
     Active Substance: FLUOROURACIL
     Indication: RECTAL ADENOCARCINOMA
     Route: 042
     Dates: start: 20180925, end: 20190109
  2. OXALIPLATINO TEVA 5 MG/ML CONCENTRADO PARA SOLUCION PARA PERFUSION EFG [Suspect]
     Active Substance: OXALIPLATIN
     Indication: RECTAL ADENOCARCINOMA
     Route: 042
     Dates: start: 20180925, end: 20181212
  3. VECTIBIX [Suspect]
     Active Substance: PANITUMUMAB
     Indication: RECTAL ADENOCARCINOMA
     Route: 042
     Dates: start: 20180925, end: 20190109

REACTIONS (1)
  - Pulmonary fibrosis [Fatal]

NARRATIVE: CASE EVENT DATE: 20190124
